FAERS Safety Report 19909583 (Version 2)
Quarter: 2021Q4

REPORT INFORMATION
  Report Type: Spontaneous
  Country: US (occurrence: US)
  Receive Date: 20211002
  Receipt Date: 20211203
  Transmission Date: 20220303
  Serious: No
  Sender: FDA-Public Use
  Company Number: US-SA-SAC20210928000210

PATIENT
  Age: 54 Year
  Sex: Female

DRUGS (9)
  1. DUPIXENT [Suspect]
     Active Substance: DUPILUMAB
     Indication: Dermatitis allergic
     Dosage: 300 MG, QOW
     Route: 058
     Dates: start: 20191003
  2. BUPROPION [Concomitant]
     Active Substance: BUPROPION
  3. EUCRISA [Concomitant]
     Active Substance: CRISABOROLE
  4. PRISTIQ EXTENDED-RELEASE [Concomitant]
     Active Substance: DESVENLAFAXINE SUCCINATE
  5. SAXENDA [Concomitant]
     Active Substance: LIRAGLUTIDE
  6. WELLBUTRIN [Concomitant]
     Active Substance: BUPROPION HYDROCHLORIDE
  7. DOXYCYCLINE [Concomitant]
     Active Substance: DOXYCYCLINE
  8. AZELAIC ACID [Concomitant]
     Active Substance: AZELAIC ACID
  9. DESVENLAFAXINE [Concomitant]
     Active Substance: DESVENLAFAXINE
     Dosage: UNK

REACTIONS (5)
  - Condition aggravated [Unknown]
  - Pruritus [Not Recovered/Not Resolved]
  - Swelling face [Not Recovered/Not Resolved]
  - Rash [Not Recovered/Not Resolved]
  - Product use in unapproved indication [Unknown]

NARRATIVE: CASE EVENT DATE: 20211106
